FAERS Safety Report 4595791-3 (Version None)
Quarter: 2005Q1

REPORT INFORMATION
  Report Type: 
  Country: None (occurrence: None)
  Receive Date: 20050224
  Receipt Date: 20050202
  Transmission Date: 20050727
  Serious: Yes (Hospitalization, Other)
  Sender: FDA-Public Use
  Company Number: CA_040206668

PATIENT
  Age: 46 Year
  Sex: Female

DRUGS (7)
  1. PERGOLIDE MESYLATE [Suspect]
     Indication: RESTLESS LEGS SYNDROME
     Dosage: 1 MG
     Dates: start: 19950101, end: 20020101
  2. PLAQUENIL [Concomitant]
  3. IMMOVANE (ZOPICLONE) [Concomitant]
  4. IMURAN [Concomitant]
  5. WELLBUTRIN [Concomitant]
  6. SERC [Concomitant]
  7. LEVODOPA [Concomitant]

REACTIONS (12)
  - ASTHENIA [None]
  - DRUG HYPERSENSITIVITY [None]
  - EYE MOVEMENT DISORDER [None]
  - FALL [None]
  - FEELING ABNORMAL [None]
  - HYPOAESTHESIA [None]
  - LOSS OF CONSCIOUSNESS [None]
  - MEDICATION ERROR [None]
  - OVERDOSE [None]
  - PALPITATIONS [None]
  - PARESIS [None]
  - VISUAL DISTURBANCE [None]
